FAERS Safety Report 24303978 (Version 1)
Quarter: 2024Q3

REPORT INFORMATION
  Report Type: Spontaneous
  Country: CN (occurrence: CN)
  Receive Date: 20240910
  Receipt Date: 20240910
  Transmission Date: 20241016
  Serious: Yes (Other)
  Sender: KYOWA
  Company Number: CN-KYOWAKIRIN-2024KK020942

PATIENT

DRUGS (1)
  1. TOREMIFENE [Suspect]
     Active Substance: TOREMIFENE
     Indication: Breast cancer
     Dosage: 60 MG (60 MG,1 IN 1 D)
     Route: 048
     Dates: start: 20240731, end: 20240831

REACTIONS (1)
  - Hepatic function abnormal [Unknown]
